FAERS Safety Report 4275056-X (Version None)
Quarter: 2004Q1

REPORT INFORMATION
  Report Type: 
  Country: None (occurrence: None)
  Receive Date: 20040116
  Receipt Date: 20040108
  Transmission Date: 20041129
  Serious: Yes (Hospitalization)
  Sender: FDA-Public Use
  Company Number: 2003-11-1232

PATIENT
  Age: 64 Year
  Sex: Male
  Weight: 62 kg

DRUGS (5)
  1. INTRON A [Suspect]
     Indication: HEPATITIS C
     Dosage: 10 MU TIW INTRAMUSCULAR
     Route: 030
     Dates: start: 20030901, end: 20031104
  2. BENIDIPINE [Concomitant]
  3. LABETALOL HYDROCHLORIDE [Concomitant]
  4. GLUTHATHIONE [Concomitant]
  5. TRANEXAMIC ACID [Concomitant]

REACTIONS (10)
  - BLOOD PRESSURE SYSTOLIC INCREASED [None]
  - DISEASE RECURRENCE [None]
  - DYSLALIA [None]
  - FUNDOSCOPY ABNORMAL [None]
  - HEMIPARESIS [None]
  - HEPATITIS C [None]
  - PARESIS [None]
  - PLATELET COUNT DECREASED [None]
  - PNEUMONIA [None]
  - THALAMUS HAEMORRHAGE [None]
